FAERS Safety Report 5587926-0 (Version None)
Quarter: 2008Q1

REPORT INFORMATION
  Report Type: 
  Country: None (occurrence: None)
  Receive Date: 20080111
  Receipt Date: 20070209
  Transmission Date: 20080703
  Serious: No
  Sender: FDA-Public Use
  Company Number: US-KINGPHARMUSA00001-K200700162

PATIENT

DRUGS (2)
  1. INTAL [Suspect]
     Indication: ASTHMA
     Dosage: 2 PUFFS, TID
  2. INTAL [Suspect]
     Dosage: 2 PUFFS, TID

REACTIONS (5)
  - DRUG INEFFECTIVE [None]
  - DYSPNOEA [None]
  - MALAISE [None]
  - PULMONARY CONGESTION [None]
  - SINUS CONGESTION [None]
